FAERS Safety Report 4398273-7 (Version None)
Quarter: 2004Q3

REPORT INFORMATION
  Report Type: 
  Country: None (occurrence: None)
  Receive Date: 20040712
  Receipt Date: 20040705
  Transmission Date: 20050211
  Serious: Yes (Other)
  Sender: FDA-Public Use
  Company Number: 2004-06-1460

PATIENT
  Sex: Female

DRUGS (1)
  1. AERIUS (DESLORATADINE) TABLETS 'LIKE CLARINEX' [Suspect]
     Indication: URTICARIA CHRONIC
     Dosage: 5 MG QD ORAL
     Route: 048
     Dates: start: 20040620, end: 20040621

REACTIONS (2)
  - ANGIONEUROTIC OEDEMA [None]
  - PERIORBITAL OEDEMA [None]
